FAERS Safety Report 7895310-X (Version None)
Quarter: 2011Q4

REPORT INFORMATION
  Report Type: 
  Country: None (occurrence: None)
  Receive Date: 20111106
  Receipt Date: 20110825
  Transmission Date: 20120403
  Serious: No
  Sender: FDA-Public Use
  Company Number: US-AMGEN-USASP2011043574

PATIENT
  Sex: Female

DRUGS (2)
  1. ENBREL [Suspect]
     Indication: RHEUMATOID ARTHRITIS
     Dates: start: 20100801, end: 20110601
  2. TREXALL [Concomitant]
     Dosage: 1 MG, QWK
     Dates: start: 20110701

REACTIONS (2)
  - BURNING SENSATION [None]
  - MYALGIA [None]
